FAERS Safety Report 10060871 (Version 2)
Quarter: 2014Q2

REPORT INFORMATION
  Report Type: Spontaneous
  Country: PR (occurrence: PR)
  Receive Date: 20140404
  Receipt Date: 20140404
  Transmission Date: 20141212
  Serious: No
  Sender: FDA-Public Use
  Company Number: PR-BAXTER-2014BAX013206

PATIENT
  Sex: Female
  Weight: 1.3 kg

DRUGS (7)
  1. 70% DEXTROSE INJECTION USP [Suspect]
     Indication: NUTRITIONAL SUPPLEMENTATION
     Route: 042
     Dates: start: 20140311, end: 20140311
  2. POTASSIUM CHLORIDE 0.4MEQ/ML [Suspect]
     Indication: NUTRITIONAL SUPPLEMENTATION
     Route: 042
     Dates: start: 20140311, end: 20140311
  3. 5% SODIUM CHLORIDE INJECTION [Suspect]
     Indication: NUTRITIONAL SUPPLEMENTATION
     Route: 042
     Dates: start: 20140311, end: 20140311
  4. 10% PREMASOL [Suspect]
     Indication: NUTRITIONAL SUPPLEMENTATION
     Route: 042
     Dates: start: 20140311, end: 20140311
  5. STERILE WATER FOR INJECTION USP [Suspect]
     Indication: NUTRITIONAL SUPPLEMENTATION
     Route: 042
     Dates: start: 20140311, end: 20140311
  6. INTRALIPID I.V. FAT EMULSION 20%- [Suspect]
     Indication: NUTRITIONAL SUPPLEMENTATION
     Route: 042
     Dates: start: 20140311, end: 20140311
  7. CA GLUCONATE [Suspect]
     Indication: NUTRITIONAL SUPPLEMENTATION
     Route: 042
     Dates: start: 20140311, end: 20140311

REACTIONS (2)
  - Product compounding quality issue [Recovered/Resolved]
  - Drug dispensing error [Recovered/Resolved]
